FAERS Safety Report 26194149 (Version 1)
Quarter: 2025Q4

REPORT INFORMATION
  Report Type: Report from Study
  Country: US (occurrence: US)
  Receive Date: 20251224
  Receipt Date: 20251224
  Transmission Date: 20260117
  Serious: Yes (Death)
  Sender: RECORDATI
  Company Number: US-RECORDATI RARE DISEASES-2025009364

PATIENT
  Age: 34 Year
  Sex: Female
  Weight: 77.098 kg

DRUGS (7)
  1. ISTURISA [Suspect]
     Active Substance: OSILODROSTAT PHOSPHATE
     Indication: Cushing^s syndrome
     Dosage: 14 MG, BID (FOUR 1 MG TABLET AND TEN 5 MG TABLET, BID)
     Route: 048
     Dates: end: 20251204
  2. ISTURISA [Suspect]
     Active Substance: OSILODROSTAT PHOSPHATE
     Dosage: 20 MG, BID (STRENGTH: 5 MG)
     Route: 048
     Dates: start: 202512, end: 202512
  3. INSULIN GLARGINE [Concomitant]
     Active Substance: INSULIN GLARGINE
     Indication: Product used for unknown indication
     Dosage: 30 UNIT/ML, SLIDING SCALE (MAX SOLOSTAR INJECTION)
     Route: 058
     Dates: start: 20251001
  4. INSULIN LISPRO [Concomitant]
     Active Substance: INSULIN LISPRO
     Indication: Product used for unknown indication
     Dosage: 100 UNIT/ML, SLIDING SCALE (INJECTION SOLUTION)
     Dates: start: 20251001
  5. LEVOTHYROXINE SODIUM [Concomitant]
     Active Substance: LEVOTHYROXINE SODIUM
     Indication: Product used for unknown indication
     Dosage: 100 MICROGRAM, QD (TABLET 100 MCG)
     Route: 048
     Dates: start: 20200202
  6. LIOTHYRONINE SODIUM [Concomitant]
     Active Substance: LIOTHYRONINE SODIUM
     Indication: Product used for unknown indication
     Dosage: 25 MICROGRAM, QD (TABLET 25 MCG)
     Route: 048
     Dates: start: 20251001
  7. POTASSIUM CHLORIDE EXTENDED RELEASE [Concomitant]
     Active Substance: POTASSIUM CHLORIDE
     Indication: Product used for unknown indication
     Dosage: 10 MEQ, DAILY (CAPSULE)
     Route: 048
     Dates: start: 20251001

REACTIONS (1)
  - Death [Fatal]

NARRATIVE: CASE EVENT DATE: 20251219
